FAERS Safety Report 12609538 (Version 1)
Quarter: 2016Q3

REPORT INFORMATION
  Report Type: Spontaneous
  Country: US (occurrence: US)
  Receive Date: 20160801
  Receipt Date: 20160801
  Transmission Date: 20161109
  Serious: No
  Sender: FDA-Public Use
  Company Number: US-TEVA-580174USA

PATIENT
  Age: 69 Year
  Sex: Female
  Weight: 52.21 kg

DRUGS (6)
  1. LYRICA [Suspect]
     Active Substance: PREGABALIN
     Route: 065
  2. WARFARIN [Suspect]
     Active Substance: WARFARIN
     Route: 065
  3. METOPROLOL. [Suspect]
     Active Substance: METOPROLOL
     Route: 065
  4. CRESTOR [Suspect]
     Active Substance: ROSUVASTATIN CALCIUM
     Route: 065
  5. BACLOFEN. [Suspect]
     Active Substance: BACLOFEN
     Indication: RADICULOPATHY
     Route: 065
     Dates: start: 20150714, end: 20150716
  6. LORAZEPAM. [Suspect]
     Active Substance: LORAZEPAM
     Route: 065

REACTIONS (3)
  - Rash [Unknown]
  - Drug interaction [Unknown]
  - Joint swelling [Unknown]

NARRATIVE: CASE EVENT DATE: 201507
